FAERS Safety Report 6743266-5 (Version None)
Quarter: 2010Q2

REPORT INFORMATION
  Report Type: 
  Country: None (occurrence: None)
  Receive Date: 20100527
  Receipt Date: 20100527
  Transmission Date: 20101027
  Serious: Yes (Other)
  Sender: FDA-Public Use
  Company Number: None

PATIENT
  Age: 14 Month
  Sex: Female
  Weight: 11.3399 kg

DRUGS (2)
  1. CHILDREN'S TYLENOL SUSPENSION [Suspect]
     Indication: TEETHING
     Dosage: 1 TSP ONCE A DAY PO
     Route: 048
     Dates: start: 20100419, end: 20100430
  2. CHILDREN'S MOTRIN [Suspect]
     Indication: TEETHING
     Dosage: 1 TSP ONCE A DAY PO
     Route: 048
     Dates: start: 20100419, end: 20100430

REACTIONS (2)
  - ERYTHEMA MULTIFORME [None]
  - PRODUCT QUALITY ISSUE [None]
